FAERS Safety Report 17105090 (Version 1)
Quarter: 2019Q4

REPORT INFORMATION
  Report Type: Other
  Country: CN (occurrence: CN)
  Receive Date: 20191203
  Receipt Date: 20191203
  Transmission Date: 20200122
  Serious: Yes (Hospitalization, Other)
  Sender: FDA-Public Use
  Company Number: CN-TOPROL ACQUISITION LLC-2019-TOP-001490

PATIENT
  Age: 71 Year
  Sex: Female
  Weight: 65 kg

DRUGS (6)
  1. METOPROLOL SUCCINATE. [Suspect]
     Active Substance: METOPROLOL SUCCINATE
     Indication: HYPERTENSION
     Dosage: 47.5 MG, QD
     Route: 048
     Dates: start: 20191020, end: 20191120
  2. FLUPENTIXOL W/MELITRACEN HYDROCHLORIDE [Concomitant]
     Indication: NEUROSIS
     Dosage: 0.5 MG, BID
     Dates: start: 20191029, end: 20191123
  3. RIVAROXABAN [Concomitant]
     Active Substance: RIVAROXABAN
     Indication: PULMONARY EMBOLISM
     Dosage: 15 MG, QD
     Dates: start: 20191121
  4. NO MATCH [Concomitant]
     Active Substance: UNSPECIFIED INGREDIENT
     Indication: ANXIETY
     Dosage: 0.5 MG, BID
  5. RIVAROXABAN [Concomitant]
     Active Substance: RIVAROXABAN
     Indication: COAGULOPATHY
     Dosage: 10 MG, QD
     Dates: start: 20191027, end: 20191120
  6. PITAVASTATIN CALCIUM [Concomitant]
     Active Substance: PITAVASTATIN CALCIUM
     Indication: ARTERIOSCLEROSIS
     Dosage: 2 MG, QD
     Dates: start: 20191030, end: 20191123

REACTIONS (11)
  - Pneumonitis [Unknown]
  - Palpitations [Unknown]
  - Aortic arteriosclerosis [Unknown]
  - Insomnia [Unknown]
  - Pulmonary mass [Unknown]
  - Dyspnoea [Unknown]
  - Gastrooesophageal reflux disease [Unknown]
  - Cardiomegaly [Unknown]
  - Pulmonary hypertension [Unknown]
  - Dizziness [Unknown]
  - Pulmonary artery dilatation [Unknown]

NARRATIVE: CASE EVENT DATE: 20191120
